FAERS Safety Report 8919409 (Version 1)
Quarter: 2012Q4

REPORT INFORMATION
  Report Type: 
  Country: ES (occurrence: ES)
  Receive Date: 20121121
  Receipt Date: 20121121
  Transmission Date: 20130627
  Serious: Yes (Other)
  Sender: FDA-Public Use
  Company Number: ES-RANBAXY-2012RR-62198

PATIENT
  Age: 22 Year
  Sex: Male

DRUGS (10)
  1. PREDNISONE [Suspect]
     Indication: NEPHROTIC SYNDROME
     Dosage: 1 mg/kg/day
     Route: 065
  2. MYCOPHENOLATE MOFETIL [Suspect]
     Indication: NEPHROTIC SYNDROME
     Dosage: 1-2 g/day
     Route: 065
  3. METHYLPREDNISOLONE [Suspect]
     Indication: NEPHROTIC SYNDROME
     Dosage: UNK
     Route: 042
  4. RITUXIMAB [Suspect]
     Indication: NEPHROTIC SYNDROME
     Dosage: 700 mg/cycle, 2 cycles
     Route: 065
  5. TACROLIMUS [Suspect]
     Indication: NEPHROTIC SYNDROME
     Dosage: UNK
     Route: 065
  6. VALSARTAN [Suspect]
     Indication: HYPERTENSION
     Dosage: 160 mg/day
     Route: 065
  7. QUINAPRIL [Suspect]
     Indication: HYPERTENSION
     Dosage: 20 mg/day
     Route: 065
  8. CANDESARTAN/HYDROCHLOROTHIAZIDE [Suspect]
     Indication: HYPERTENSION
     Dosage: 16/12.5 mg/day
     Route: 065
  9. QUINAPRIL [Suspect]
     Indication: HYPERTENSION
     Dosage: 10 mg/day
     Route: 065
  10. ALISKIREN [Concomitant]
     Indication: HYPERTENSION
     Dosage: UNK
     Route: 065

REACTIONS (1)
  - Bartter^s syndrome [Unknown]
